FAERS Safety Report 18337543 (Version 1)
Quarter: 2020Q4

REPORT INFORMATION
  Report Type: Spontaneous
  Country: US (occurrence: US)
  Receive Date: 20201002
  Receipt Date: 20201002
  Transmission Date: 20210113
  Serious: No
  Sender: FDA-Public Use
  Company Number: US-SPARK THERAPEUTICS, INC.-US-SPK-20-00054

PATIENT
  Sex: Female

DRUGS (2)
  1. LUXTURNA [Suspect]
     Active Substance: VORETIGENE NEPARVOVEC-RZYL
     Indication: PRODUCT USED FOR UNKNOWN INDICATION
  2. LUXTURNA [Suspect]
     Active Substance: VORETIGENE NEPARVOVEC-RZYL
     Indication: PRODUCT USED FOR UNKNOWN INDICATION

REACTIONS (4)
  - Seizure [Recovering/Resolving]
  - Rash [Unknown]
  - Disturbance in attention [Not Recovered/Not Resolved]
  - Pyrexia [Recovering/Resolving]
